FAERS Safety Report 7373158-2 (Version None)
Quarter: 2011Q1

REPORT INFORMATION
  Report Type: 
  Country: None (occurrence: None)
  Receive Date: 20110324
  Receipt Date: 20110315
  Transmission Date: 20110831
  Serious: No
  Sender: FDA-Public Use
  Company Number: US-ASTRAZENECA-2011SE09701

PATIENT
  Age: 19 Year
  Sex: Male

DRUGS (9)
  1. SEROQUEL XR [Suspect]
     Indication: BIPOLAR I DISORDER
     Route: 048
     Dates: start: 20101223
  2. ABILIFY [Concomitant]
     Route: 065
  3. ABILIFY [Concomitant]
     Route: 065
  4. SEROQUEL XR [Suspect]
     Route: 048
     Dates: end: 20110217
  5. TRAZODONE HCL [Concomitant]
     Route: 065
  6. DIVALPROEX SODIUM [Concomitant]
     Route: 065
  7. DEPAKOTE [Concomitant]
     Indication: BIPOLAR I DISORDER
     Route: 048
  8. DEPAKOTE [Concomitant]
     Route: 048
     Dates: start: 20101223, end: 20110217
  9. HALOPERIDOL [Concomitant]
     Route: 065

REACTIONS (1)
  - WHITE BLOOD CELL COUNT DECREASED [None]
